FAERS Safety Report 7042379-0 (Version None)
Quarter: 2010Q4

REPORT INFORMATION
  Report Type: 
  Country: None (occurrence: None)
  Receive Date: 20101013
  Receipt Date: 20100708
  Transmission Date: 20110411
  Serious: No
  Sender: FDA-Public Use
  Company Number: US-ASTRAZENECA-2010SE31792

PATIENT
  Age: 75 Year
  Sex: Female
  Weight: 50.8 kg

DRUGS (6)
  1. SYMBICORT [Suspect]
     Indication: EMPHYSEMA
     Dosage: 160/4.5, 2 PUFFS
     Route: 055
     Dates: start: 20091201
  2. SYMBICORT [Suspect]
     Indication: ASTHMA
     Dosage: 160/4.5, 2 PUFFS
     Route: 055
     Dates: start: 20091201
  3. SYMBICORT [Suspect]
     Dosage: 160/4.5, 1 PUFFS
     Route: 055
     Dates: start: 20100501
  4. SYMBICORT [Suspect]
     Dosage: 160/4.5, 1 PUFFS
     Route: 055
     Dates: start: 20100501
  5. RAMIPRIL [Concomitant]
  6. CALCIUM AND VITAMIN D SUPPLEMENTS [Concomitant]

REACTIONS (2)
  - HYPOGEUSIA [None]
  - HYPOSMIA [None]
